FAERS Safety Report 4661529-4 (Version None)
Quarter: 2005Q2

REPORT INFORMATION
  Report Type: 
  Country: None (occurrence: None)
  Receive Date: 20050511
  Receipt Date: 20050511
  Transmission Date: 20051028
  Serious: No
  Sender: FDA-Public Use
  Company Number: None

PATIENT
  Sex: Male
  Weight: 60.3284 kg

DRUGS (5)
  1. CISPLATIN [Suspect]
     Dosage: 30 MG/M2 DAYS 1, 8, 22, 29 (2 CYCLES OF 21 DAYS)
     Dates: start: 20050112
  2. IRINOTECAN [Suspect]
     Dosage: 65 MG/M2 2 DAYS 1,8,22,29 (2 CYCLES FOR 21 DAYS)
  3. CARBOPLATIN [Suspect]
     Dosage: AUC 5 IV ON DAYS 43,64, 85 (CYCLE 3,4,5)
     Route: 042
  4. ETOPOSIDE [Suspect]
     Dosage: 100 MG/M2 IV ON DAYS 43-45,64-66, 85-87
     Route: 042
  5. XRT [Suspect]
     Dosage: 5 FRACTIONS/WEEK STARTING DAY 43 TO 7000CGY

REACTIONS (4)
  - DEHYDRATION [None]
  - GASTROINTESTINAL INFLAMMATION [None]
  - GASTROINTESTINAL ULCER [None]
  - RADIATION OESOPHAGITIS [None]
